FAERS Safety Report 5597222-3 (Version None)
Quarter: 2008Q1

REPORT INFORMATION
  Report Type: 
  Country: None (occurrence: None)
  Receive Date: 20080121
  Receipt Date: 20080108
  Transmission Date: 20080703
  Serious: Yes (Other)
  Sender: FDA-Public Use
  Company Number: PHHY2008US00597

PATIENT
  Sex: Female

DRUGS (2)
  1. LOPRESSOR [Suspect]
     Indication: HYPERTENSION
     Dosage: 1 DAILY
  2. LISINOPRIL [Concomitant]
     Indication: HYPERTENSION
     Dosage: 3 DAILY

REACTIONS (1)
  - RETINAL VEIN OCCLUSION [None]
